FAERS Safety Report 16879127 (Version 1)
Quarter: 2019Q4

REPORT INFORMATION
  Report Type: Spontaneous
  Country: US (occurrence: US)
  Receive Date: 20191003
  Receipt Date: 20191003
  Transmission Date: 20200122
  Serious: No
  Sender: FDA-Public Use
  Company Number: US-JNJFOC-20190938821

PATIENT
  Age: 24 Month
  Sex: Female
  Weight: 13.62 kg

DRUGS (1)
  1. INFANTS TYLENOL [Suspect]
     Active Substance: ACETAMINOPHEN
     Indication: ACCIDENTAL EXPOSURE TO PRODUCT
     Dosage: GOT THE BOTTLE IN MOUTH AND TIPPED IT BACK
     Route: 048

REACTIONS (1)
  - Accidental exposure to product by child [Unknown]
